FAERS Safety Report 9189127 (Version 5)
Quarter: 2017Q2

REPORT INFORMATION
  Report Type: Report from Study
  Country: CA (occurrence: CA)
  Receive Date: 20130326
  Receipt Date: 20170628
  Transmission Date: 20170830
  Serious: Yes (Life-Threatening, Hospitalization, Other)
  Sender: FDA-Public Use
  Company Number: CA-BRISTOL-MYERS SQUIBB COMPANY-17447384

PATIENT
  Age: 7 Year
  Sex: Male

DRUGS (13)
  1. ETOPOSIDE. [Suspect]
     Active Substance: ETOPOSIDE
     Indication: ACUTE LYMPHOCYTIC LEUKAEMIA
     Dosage: 86 MG, INTERMITTENT
     Route: 042
     Dates: start: 20130331, end: 20130402
  2. ARA-C [Concomitant]
     Active Substance: CYTARABINE
     Indication: ACUTE LYMPHOCYTIC LEUKAEMIA
     Dosage: 05-MAR-2013  29MAR-30MAR13  ROUT:IV
     Route: 037
     Dates: start: 20130212, end: 20130330
  3. DAUNORUBICIN [Concomitant]
     Active Substance: DAUNORUBICIN
     Indication: ACUTE LYMPHOCYTIC LEUKAEMIA
     Dosage: 26.7 MG, UNK
     Route: 042
     Dates: start: 20130309, end: 20130309
  4. LEUCOVORIN. [Concomitant]
     Active Substance: LEUCOVORIN
     Indication: ACUTE LYMPHOCYTIC LEUKAEMIA
     Dosage: 13-14FEB13  6-7MAR-13.4MG
     Route: 042
     Dates: start: 20130213, end: 20130307
  5. METHOTREXATE. [Concomitant]
     Active Substance: METHOTREXATE
     Indication: ACUTE LYMPHOCYTIC LEUKAEMIA
     Dosage: MTX HD-4.445MG:12FEB13:IV  MTX-12MG:12FEB13:IT  5-5MAR13-12MGIT;HD-4445MGIV  02-02APR13
     Route: 042
     Dates: start: 20130212
  6. IFOSFAMIDE. [Suspect]
     Active Substance: IFOSFAMIDE
     Indication: ACUTE LYMPHOCYTIC LEUKAEMIA
     Dosage: 712 MG, UNK
     Route: 042
     Dates: start: 20130306, end: 20130308
  7. CYCLOPHOSPHAMIDE. [Concomitant]
     Active Substance: CYCLOPHOSPHAMIDE
     Indication: ACUTE LYMPHOCYTIC LEUKAEMIA
     Dosage: 180 MG, UNK
     Route: 042
     Dates: start: 20130213, end: 20130215
  8. DEXAMETHASONE. [Concomitant]
     Active Substance: DEXAMETHASONE
     Indication: ACUTE LYMPHOCYTIC LEUKAEMIA
     Dosage: 12-16FEB13  5-9MAR13-18MG
     Route: 048
     Dates: start: 20130212, end: 20130407
  9. HYDROCORTISONE. [Concomitant]
     Active Substance: HYDROCORTISONE
     Indication: ACUTE LYMPHOCYTIC LEUKAEMIA
     Dosage: 12-12FEB13  5-5MAR13-12MG  02-07APR13
     Route: 037
     Dates: start: 20130212, end: 20130407
  10. G-CSF [Concomitant]
     Active Substance: GRANULOCYTE COLONY-STIMULATING FACTOR NOS
     Indication: ACUTE LYMPHOCYTIC LEUKAEMIA
     Dosage: 18-22FEB13-120MG  11MAR13-115MICROGRAM  03APR13-ONG  105MG
     Route: 058
     Dates: start: 20130218
  11. VINCRISTINE [Concomitant]
     Active Substance: VINCRISTINE
     Indication: ACUTE LYMPHOCYTIC LEUKAEMIA
     Dosage: ADMINISTERED 13+17FEB13  6-6MAR13,10-10MAR13-1.3MG
     Route: 042
     Dates: start: 20130213, end: 20130310
  12. DASATINIB [Suspect]
     Active Substance: DASATINIB
     Indication: ACUTE LYMPHOCYTIC LEUKAEMIA
     Dosage: 50MG.  55MG ORAL DAILY.
     Route: 048
     Dates: start: 20121121
  13. PEG-L-ASPARAGINASE [Concomitant]
     Active Substance: PEGASPARGASE
     Indication: ACUTE LYMPHOCYTIC LEUKAEMIA
     Dosage: 17-17MAR13  10-10MAR13  03-03APR13
     Route: 042
     Dates: start: 20130217, end: 20130403

REACTIONS (4)
  - Decreased appetite [Recovered/Resolved]
  - Colitis [Not Recovered/Not Resolved]
  - Febrile neutropenia [Recovered/Resolved]
  - Sepsis [Recovered/Resolved]

NARRATIVE: CASE EVENT DATE: 20130222
